FAERS Safety Report 13160854 (Version 1)
Quarter: 2017Q1

REPORT INFORMATION
  Report Type: Spontaneous
  Country: US (occurrence: US)
  Receive Date: 20170130
  Receipt Date: 20170130
  Transmission Date: 20170428
  Serious: Yes (Death, Life-Threatening, Hospitalization, Disabling, Other)
  Sender: FDA-Public Use
  Company Number: US-JNJFOC-20170124150

PATIENT

DRUGS (22)
  1. ALFUZOSIN [Concomitant]
     Active Substance: ALFUZOSIN
     Route: 065
  2. OMEPRAZOLE. [Concomitant]
     Active Substance: OMEPRAZOLE
     Route: 065
  3. TRAZODONE [Concomitant]
     Active Substance: TRAZODONE HYDROCHLORIDE
     Route: 065
  4. LOPERAMIDE [Suspect]
     Active Substance: LOPERAMIDE
     Indication: DIARRHOEA
     Route: 065
  5. RANITIDINE. [Concomitant]
     Active Substance: RANITIDINE
     Route: 065
  6. ATORVASTATIN [Concomitant]
     Active Substance: ATORVASTATIN
     Route: 065
  7. GINKGO BILOBA [Concomitant]
     Active Substance: GINKGO
     Route: 065
  8. LOPERAMIDE [Suspect]
     Active Substance: LOPERAMIDE
     Indication: DRUG ABUSE
     Route: 065
  9. PROMETHAZINE [Concomitant]
     Active Substance: PROMETHAZINE\PROMETHAZINE HYDROCHLORIDE
     Route: 065
  10. AMLODIPINE [Concomitant]
     Active Substance: AMLODIPINE BESYLATE
     Route: 065
  11. ARIPIPRAZOLE. [Concomitant]
     Active Substance: ARIPIPRAZOLE
     Route: 065
  12. GEMFIBROZIL. [Concomitant]
     Active Substance: GEMFIBROZIL
     Route: 065
  13. HYDROCHLOROTHIAZIDE. [Concomitant]
     Active Substance: HYDROCHLOROTHIAZIDE
     Route: 065
  14. LOPERAMIDE [Suspect]
     Active Substance: LOPERAMIDE
     Indication: INTENTIONAL PRODUCT MISUSE
     Route: 065
  15. LITHIUM. [Concomitant]
     Active Substance: LITHIUM
     Route: 065
  16. CIMETIDINE [Concomitant]
     Active Substance: CIMETIDINE
     Route: 065
  17. PANTOPRAZOLE [Concomitant]
     Active Substance: PANTOPRAZOLE SODIUM
     Route: 065
  18. TRIMETHOPRIM SULFAMETHOXAZOLE [Concomitant]
     Active Substance: SULFAMETHOXAZOLE\TRIMETHOPRIM
     Route: 065
  19. LOPERAMIDE [Suspect]
     Active Substance: LOPERAMIDE
     Indication: COLITIS ULCERATIVE
     Route: 065
  20. AMITRIPTYLINE [Concomitant]
     Active Substance: AMITRIPTYLINE
     Route: 065
  21. CAFFEINE. [Concomitant]
     Active Substance: CAFFEINE
     Route: 065
  22. LOPERAMIDE [Suspect]
     Active Substance: LOPERAMIDE
     Indication: COMPLETED SUICIDE
     Route: 065

REACTIONS (16)
  - Death [Fatal]
  - Arrhythmia [Unknown]
  - Hypotension [Unknown]
  - Intentional product misuse [Unknown]
  - Torsade de pointes [Unknown]
  - Electrocardiogram QT prolonged [Unknown]
  - Drug abuse [Unknown]
  - Syncope [Unknown]
  - Intentional overdose [Unknown]
  - Bradycardia [Unknown]
  - Ventricular tachyarrhythmia [Unknown]
  - Ventricular tachycardia [Unknown]
  - Electrocardiogram QRS complex prolonged [Unknown]
  - Cardiac arrest [Unknown]
  - Ventricular arrhythmia [Unknown]
  - Loss of consciousness [Unknown]
